FAERS Safety Report 6347536-4 (Version None)
Quarter: 2009Q3

REPORT INFORMATION
  Report Type: 
  Country: None (occurrence: None)
  Receive Date: 20090910
  Receipt Date: 20090902
  Transmission Date: 20100115
  Serious: Yes (Death, Hospitalization)
  Sender: FDA-Public Use
  Company Number: US-TEVA-208531USA

PATIENT
  Age: 35 Year
  Sex: Male

DRUGS (4)
  1. SERTRALINE HCL [Suspect]
     Route: 048
  2. VENLAFAXINE [Suspect]
  3. METHADONE [Suspect]
     Dosage: 20 TABLETS OF 10MG METHADONE ALL AT ONCE
     Route: 048
  4. TOPIRAMATE [Concomitant]

REACTIONS (5)
  - DRUG INTERACTION [None]
  - INTENTIONAL OVERDOSE [None]
  - NARCOTIC INTOXICATION [None]
  - OVERDOSE [None]
  - SEROTONIN SYNDROME [None]
